FAERS Safety Report 14339496 (Version 2)
Quarter: 2018Q1

REPORT INFORMATION
  Report Type: Spontaneous
  Country: FI (occurrence: FI)
  Receive Date: 20171230
  Receipt Date: 20180221
  Transmission Date: 20180509
  Serious: Yes (Hospitalization)
  Sender: FDA-Public Use
  Company Number: FI-STRIDES ARCOLAB LIMITED-2017SP014996

PATIENT

DRUGS (11)
  1. PIPERACILLIN AND TAZOBACTAM [Suspect]
     Active Substance: PIPERACILLIN SODIUM\TAZOBACTAM SODIUM
     Indication: SEPSIS
     Dosage: 4 G, EVERY 8 HOURS
     Route: 042
  2. T4 [Concomitant]
     Active Substance: LEVOTHYROXINE
     Indication: MYXOEDEMA
     Dosage: 500 ?G, UNK
     Route: 042
  3. T4 [Concomitant]
     Active Substance: LEVOTHYROXINE
     Dosage: 100 ?G, EVERY 8 HRS
     Route: 042
  4. CEFUROXIME. [Suspect]
     Active Substance: CEFUROXIME
     Indication: SEPSIS
     Dosage: 1.5 G, EVERY 8 HOURS
     Route: 042
  5. PIPERACILLIN AND TAZOBACTAM [Suspect]
     Active Substance: PIPERACILLIN SODIUM\TAZOBACTAM SODIUM
     Indication: CLOSTRIDIUM DIFFICILE INFECTION
  6. METRONIDAZOLE. [Suspect]
     Active Substance: METRONIDAZOLE
     Indication: SEPSIS
     Dosage: 500 MG, EVERY 8 HRS
     Route: 042
  7. T4 [Concomitant]
     Active Substance: LEVOTHYROXINE
     Dosage: DOSE REDUCED
     Route: 042
  8. T3 [Concomitant]
     Active Substance: LIOTHYRONINE SODIUM
     Indication: MYXOEDEMA
     Dosage: 5 ?G, EVERY 8 HRS
     Route: 042
  9. METRONIDAZOLE. [Suspect]
     Active Substance: METRONIDAZOLE
     Indication: CLOSTRIDIUM DIFFICILE INFECTION
  10. T3 [Concomitant]
     Active Substance: LIOTHYRONINE SODIUM
     Dosage: DOSE REDUCED
     Route: 042
  11. T4 [Concomitant]
     Active Substance: LEVOTHYROXINE
     Dosage: UNK
     Route: 048

REACTIONS (5)
  - Diarrhoea [Recovered/Resolved]
  - Clostridium difficile infection [Recovered/Resolved]
  - Abdominal distension [Recovered/Resolved]
  - Constipation [Recovered/Resolved]
  - Gastrointestinal oedema [Recovered/Resolved]
